FAERS Safety Report 4613910-7 (Version None)
Quarter: 2005Q1

REPORT INFORMATION
  Report Type: 
  Country: None (occurrence: None)
  Receive Date: 20050321
  Receipt Date: 20041214
  Transmission Date: 20050727
  Serious: Yes (Life-Threatening, Hospitalization)
  Sender: FDA-Public Use
  Company Number: DE-GLAXOSMITHKLINE-B0361364A

PATIENT
  Age: 40 Year
  Sex: Male
  Weight: 66 kg

DRUGS (5)
  1. ABACAVIR SULFATE + LAMIVUDINE [Suspect]
     Indication: HIV INFECTION
     Dosage: 1TAB PER DAY
     Route: 048
     Dates: start: 20041202, end: 20041212
  2. LOPINAVIR + RITONAVIR [Suspect]
     Indication: HIV INFECTION
     Dosage: 1TAB TWICE PER DAY
     Route: 048
     Dates: start: 20041202, end: 20041212
  3. CO-TRIMOXAZOLE FORTE [Concomitant]
     Dosage: 450MG PER DAY
     Route: 048
     Dates: start: 20041123, end: 20041212
  4. FLUCONAZOLE [Concomitant]
     Indication: CANDIDIASIS
     Dosage: 100MG PER DAY
     Route: 048
     Dates: start: 20041118, end: 20041212
  5. NORMOC [Concomitant]
     Indication: ANXIETY
     Dosage: 6MG PER DAY
     Route: 048
     Dates: start: 20041118

REACTIONS (33)
  - AGITATION [None]
  - BLOOD CREATINE PHOSPHOKINASE INCREASED [None]
  - BLOOD CREATININE INCREASED [None]
  - BLOOD LACTATE DEHYDROGENASE INCREASED [None]
  - BLOOD SODIUM DECREASED [None]
  - C-REACTIVE PROTEIN INCREASED [None]
  - CHILLS [None]
  - COUGH [None]
  - DERMATITIS EXFOLIATIVE [None]
  - DRUG HYPERSENSITIVITY [None]
  - EPIDERMOLYSIS [None]
  - FATIGUE [None]
  - FIBRIN D DIMER INCREASED [None]
  - GAMMA-GLUTAMYLTRANSFERASE INCREASED [None]
  - HALLUCINATION [None]
  - HEADACHE [None]
  - LEUKOPENIA [None]
  - LOSS OF CONSCIOUSNESS [None]
  - MALAISE [None]
  - MYALGIA [None]
  - OEDEMA [None]
  - OXYGEN SATURATION DECREASED [None]
  - PNEUMOCYSTIS JIROVECI PNEUMONIA [None]
  - PNEUMONIA ASPERGILLUS [None]
  - PSYCHOTIC DISORDER [None]
  - PYREXIA [None]
  - RASH MACULO-PAPULAR [None]
  - RENAL FAILURE [None]
  - RHABDOMYOLYSIS [None]
  - SKIN EXFOLIATION [None]
  - TACHYCARDIA [None]
  - THROMBOCYTOPENIA [None]
  - URTICARIA [None]
